FAERS Safety Report 6534748-X (Version None)
Quarter: 2010Q1

REPORT INFORMATION
  Report Type: 
  Country: None (occurrence: None)
  Receive Date: 20100112
  Receipt Date: 20100107
  Transmission Date: 20100710
  Serious: Yes (Death, Disabling, Other)
  Sender: FDA-Public Use
  Company Number: US-BAYER-201010258NA

PATIENT
  Sex: Male

DRUGS (6)
  1. MAGNEVIST [Suspect]
     Indication: NUCLEAR MAGNETIC RESONANCE IMAGING
  2. OPTIMARK [Suspect]
     Indication: NUCLEAR MAGNETIC RESONANCE IMAGING
  3. OMNISCAN [Suspect]
     Indication: NUCLEAR MAGNETIC RESONANCE IMAGING
  4. MULTIHANCE [Suspect]
     Indication: NUCLEAR MAGNETIC RESONANCE IMAGING
  5. PROHANCE [Suspect]
     Indication: NUCLEAR MAGNETIC RESONANCE IMAGING
  6. UNSPECIFIED GADOLINIUM BASED CONTRAST AGENT [Suspect]
     Indication: NUCLEAR MAGNETIC RESONANCE IMAGING
     Dates: start: 20061102, end: 20061102

REACTIONS (2)
  - NEPHROGENIC SYSTEMIC FIBROSIS [None]
  - PAIN [None]
